FAERS Safety Report 4910688-4 (Version None)
Quarter: 2006Q1

REPORT INFORMATION
  Report Type: 
  Country: None (occurrence: None)
  Receive Date: 20060214
  Receipt Date: 20051019
  Transmission Date: 20060701
  Serious: Yes (Death)
  Sender: FDA-Public Use
  Company Number: PHNR2005AU01516

PATIENT
  Age: 33 Year
  Sex: Female

DRUGS (5)
  1. CLOZARIL [Suspect]
     Indication: SCHIZOPHRENIA
     Dosage: 0 - 450 MG/DAY
     Dates: start: 20050321
  2. CLOZARIL [Suspect]
     Route: 065
  3. CHLORPROMAZINE [Suspect]
  4. ZOPICLONE [Suspect]
  5. METHADONE [Suspect]

REACTIONS (3)
  - COMPLETED SUICIDE [None]
  - DRUG TOXICITY [None]
  - INTENTIONAL OVERDOSE [None]
